FAERS Safety Report 12247199 (Version 2)
Quarter: 2017Q2

REPORT INFORMATION
  Report Type: Report from Study
  Country: US (occurrence: US)
  Receive Date: 20160407
  Receipt Date: 20170620
  Transmission Date: 20170830
  Serious: No
  Sender: FDA-Public Use
  Company Number: PHEH2016US008299

PATIENT
  Sex: Male

DRUGS (1)
  1. TRILEPTAL [Suspect]
     Active Substance: OXCARBAZEPINE
     Indication: TEMPORAL LOBE EPILEPSY
     Dosage: UNK
     Route: 065
     Dates: start: 2015

REACTIONS (5)
  - Hair colour changes [Unknown]
  - Anxiety [Unknown]
  - Blood pressure increased [Unknown]
  - Alopecia [Unknown]
  - Seizure [Not Recovered/Not Resolved]
